FAERS Safety Report 12527592 (Version 1)
Quarter: 2016Q3

REPORT INFORMATION
  Report Type: Report from Study
  Country: CA (occurrence: CA)
  Receive Date: 20160705
  Receipt Date: 20160705
  Transmission Date: 20161109
  Serious: Yes (Hospitalization, Other)
  Sender: FDA-Public Use
  Company Number: CA-ROCHE-1582110

PATIENT
  Age: 68 Year
  Sex: Female

DRUGS (7)
  1. XOLAIR [Suspect]
     Active Substance: OMALIZUMAB
     Indication: CHRONIC SPONTANEOUS URTICARIA
     Dosage: 300 MG, EVERY 4 WEEKS
     Route: 058
     Dates: start: 20150223
  2. SUPEUDOL [Suspect]
     Active Substance: OXYCODONE HYDROCHLORIDE
     Indication: BACK DISORDER
     Route: 065
  3. DILAUDID [Suspect]
     Active Substance: HYDROMORPHONE HYDROCHLORIDE
     Indication: BACK DISORDER
     Route: 065
  4. XOLAIR [Suspect]
     Active Substance: OMALIZUMAB
     Dosage: 450 MG, EVERY 4 WEEKS
     Route: 058
     Dates: start: 20150930
  5. XOLAIR [Suspect]
     Active Substance: OMALIZUMAB
     Dosage: 450 MG, EVERY 4 WEEKS
     Route: 058
     Dates: start: 201505
  6. XOLAIR [Suspect]
     Active Substance: OMALIZUMAB
     Dosage: 450 MG, EVERY 4 WEEKS
     Route: 058
     Dates: start: 2016, end: 2016
  7. XOLAIR [Suspect]
     Active Substance: OMALIZUMAB
     Dosage: 300 MG, EVERY 4 WEEKS
     Route: 058

REACTIONS (5)
  - Nephrolithiasis [Recovering/Resolving]
  - Chronic spontaneous urticaria [Unknown]
  - Hypersensitivity [Unknown]
  - Incorrect dose administered [Unknown]
  - Drug ineffective [Unknown]

NARRATIVE: CASE EVENT DATE: 20150301
